FAERS Safety Report 13757464 (Version 1)
Quarter: 2017Q3

REPORT INFORMATION
  Report Type: Spontaneous
  Country: US (occurrence: US)
  Receive Date: 20170717
  Receipt Date: 20170717
  Transmission Date: 20171127
  Serious: No
  Sender: FDA-Public Use
  Company Number: US-CELGENEUS-USA-20170700545

PATIENT
  Age: 34 Year
  Sex: Male
  Weight: 118.04 kg

DRUGS (1)
  1. OTEZLA [Suspect]
     Active Substance: APREMILAST
     Indication: PSORIASIS
     Dosage: 60 MILLIGRAM
     Route: 048

REACTIONS (5)
  - Chromaturia [Unknown]
  - Diarrhoea [Unknown]
  - Urine odour abnormal [Unknown]
  - Gastric disorder [Unknown]
  - Flatulence [Unknown]

NARRATIVE: CASE EVENT DATE: 201706
